FAERS Safety Report 21867380 (Version 1)
Quarter: 2023Q1

REPORT INFORMATION
  Report Type: Spontaneous
  Country: JM (occurrence: JM)
  Receive Date: 20230116
  Receipt Date: 20230116
  Transmission Date: 20230418
  Serious: Yes (Hospitalization)
  Sender: FDA-Public Use
  Company Number: JM-GLASSHOUSE PHARMACEUTICALS LIMITED CA-2023GLH00001

PATIENT
  Age: 20 Year
  Sex: Male

DRUGS (4)
  1. OXCARBAZEPINE [Suspect]
     Active Substance: OXCARBAZEPINE
  2. TOPIRAMATE [Suspect]
     Active Substance: TOPIRAMATE
  3. LORAZEPAM [Concomitant]
     Active Substance: LORAZEPAM
  4. CLONIDINE [Concomitant]
     Active Substance: CLONIDINE

REACTIONS (1)
  - Neuroleptic malignant syndrome [Recovered/Resolved]
